FAERS Safety Report 22635382 (Version 1)
Quarter: 2023Q2

REPORT INFORMATION
  Report Type: Spontaneous
  Country: CA (occurrence: CA)
  Receive Date: 20230623
  Receipt Date: 20230623
  Transmission Date: 20230721
  Serious: Yes (Hospitalization, Other)
  Sender: FDA-Public Use
  Company Number: CA-BAYER-2023A083973

PATIENT
  Age: 26 Year
  Sex: Female

DRUGS (1)
  1. YAZ [Suspect]
     Active Substance: DROSPIRENONE\ETHINYL ESTRADIOL
     Indication: Menstrual cycle management
     Dosage: UNK
     Route: 048
     Dates: start: 20140911, end: 201501

REACTIONS (11)
  - Cholecystitis [None]
  - Bile duct stone [None]
  - Pancreatitis relapsing [None]
  - Headache [None]
  - Back pain [None]
  - Musculoskeletal pain [None]
  - Nausea [None]
  - Vomiting [None]
  - Abdominal pain [None]
  - Abdominal tenderness [None]
  - Abdominal pain upper [None]

NARRATIVE: CASE EVENT DATE: 20141031
